FAERS Safety Report 24583565 (Version 2)
Quarter: 2024Q4

REPORT INFORMATION
  Report Type: Report from Study
  Country: CA (occurrence: CA)
  Receive Date: 20241106
  Receipt Date: 20241111
  Transmission Date: 20250115
  Serious: Yes (Hospitalization)
  Sender: ROCHE
  Company Number: CA-002147023-NVSC2024CA212426

PATIENT
  Age: 47 Year
  Sex: Male

DRUGS (2)
  1. XOLAIR [Suspect]
     Active Substance: OMALIZUMAB
     Indication: Chronic spontaneous urticaria
     Dosage: 300 MG, EVERY 4 WEEKS
     Route: 050
     Dates: start: 20240909
  2. XOLAIR [Suspect]
     Active Substance: OMALIZUMAB
     Dosage: UNK (THIRD INJECTION)
     Route: 058
     Dates: start: 20241007

REACTIONS (4)
  - Dyspnoea [Unknown]
  - Swelling [Unknown]
  - Blood pressure increased [Unknown]
  - Hypersensitivity [Recovering/Resolving]

NARRATIVE: CASE EVENT DATE: 20240910
